FAERS Safety Report 21275158 (Version 1)
Quarter: 2022Q3

REPORT INFORMATION
  Report Type: Spontaneous
  Country: US (occurrence: US)
  Receive Date: 20220831
  Receipt Date: 20220831
  Transmission Date: 20221027
  Serious: Yes (Hospitalization, Other)
  Sender: FDA-Public Use
  Company Number: US-PFIZER INC-202201085421

PATIENT
  Age: 63 Year
  Sex: Female

DRUGS (2)
  1. CIPROFLOXACIN [Suspect]
     Active Substance: CIPROFLOXACIN
     Indication: Febrile neutropenia
     Dosage: UNK
  2. CEFDINIR MONOHYDRATE [Suspect]
     Active Substance: CEFDINIR MONOHYDRATE
     Indication: Febrile neutropenia
     Dosage: UNK
     Route: 048

REACTIONS (3)
  - Acute febrile neutrophilic dermatosis [Unknown]
  - Condition aggravated [Recovered/Resolved]
  - Rash maculo-papular [Not Recovered/Not Resolved]
